FAERS Safety Report 13235683 (Version 2)
Quarter: 2017Q1

REPORT INFORMATION
  Report Type: Spontaneous
  Country: US (occurrence: US)
  Receive Date: 20170215
  Receipt Date: 20170302
  Transmission Date: 20170428
  Serious: Yes (Hospitalization)
  Sender: FDA-Public Use
  Company Number: US-LUNDBECK-DKLU2026335

PATIENT
  Age: 23 Year
  Sex: Female

DRUGS (1)
  1. NORTHERA [Suspect]
     Active Substance: DROXIDOPA
     Indication: PRODUCT USED FOR UNKNOWN INDICATION
     Dosage: TITRATION COMPLETE
     Route: 065
     Dates: start: 20161121

REACTIONS (4)
  - Bacterial infection [Recovered/Resolved]
  - Post procedural complication [Recovered/Resolved]
  - Surgery [Unknown]
  - Headache [Unknown]

NARRATIVE: CASE EVENT DATE: 20170124
